FAERS Safety Report 6771473-4 (Version None)
Quarter: 2010Q2

REPORT INFORMATION
  Report Type: 
  Country: None (occurrence: None)
  Receive Date: 20100616
  Receipt Date: 20100528
  Transmission Date: 20101027
  Serious: Yes (Other)
  Sender: FDA-Public Use
  Company Number: US-ROCHE-695705

PATIENT
  Sex: Female
  Weight: 86.6 kg

DRUGS (17)
  1. AVASTIN [Suspect]
     Indication: OVARIAN CANCER
     Dosage: TOTAL DOSE : 1900 TO 950 MG
     Route: 042
     Dates: start: 20090721, end: 20100408
  2. AVASTIN [Suspect]
     Route: 042
     Dates: start: 20100504
  3. DOXIL [Suspect]
     Indication: OVARIAN CANCER
     Route: 042
     Dates: start: 20090721, end: 20100408
  4. DOXIL [Suspect]
     Route: 042
     Dates: start: 20100504
  5. GABAPENTIN [Concomitant]
     Dates: start: 20100209
  6. DICLOFENAC SODIUM [Concomitant]
     Dates: start: 20100209
  7. SIMVASTIN [Concomitant]
     Dates: start: 20100209
  8. LISINOPRIL [Concomitant]
     Dates: start: 20100209
  9. ATIVAN [Concomitant]
     Dates: start: 20100209
  10. ZANTAC [Concomitant]
     Dates: start: 20100209
  11. ZOVIRAX [Concomitant]
     Dosage: 3-4 PER DAY.
     Dates: start: 20100209
  12. VICODIN [Concomitant]
     Dosage: 4-5 / WEEK
     Dates: start: 20100209
  13. MAGIC MOUTHWASH NOS [Concomitant]
     Dates: start: 20100209
  14. MOTRIN [Concomitant]
     Dosage: FREQUENCY: Q 6 HOURS PRN
     Dates: start: 20100209
  15. M.V.I. [Concomitant]
  16. STOOL SOFTENER [Concomitant]
     Dates: start: 20100209
  17. OMEGA-3 TRIGLYCERIDES/UBIDECARENONE [Concomitant]
     Dates: start: 20100209

REACTIONS (1)
  - BONE DENSITY DECREASED [None]
